FAERS Safety Report 6485262-1 (Version None)
Quarter: 2009Q4

REPORT INFORMATION
  Report Type: 
  Country: None (occurrence: None)
  Receive Date: 20091209
  Receipt Date: 20091130
  Transmission Date: 20100525
  Serious: Yes (Death)
  Sender: FDA-Public Use
  Company Number: US-MERCK-0609USA03367

PATIENT
  Age: 67 Year
  Sex: Female

DRUGS (3)
  1. PEPCID [Suspect]
     Indication: SUICIDE ATTEMPT
     Route: 048
  2. LOPERAMIDE [Suspect]
     Indication: SUICIDE ATTEMPT
     Route: 048
  3. ACETAMINOPHEN [Suspect]
     Indication: SUICIDE ATTEMPT
     Route: 048

REACTIONS (8)
  - ACIDOSIS [None]
  - COMPLETED SUICIDE [None]
  - DEATH [None]
  - HYPOTENSION [None]
  - HYPOTHERMIA [None]
  - MULTIPLE DRUG OVERDOSE INTENTIONAL [None]
  - RESPIRATORY FAILURE [None]
  - UNRESPONSIVE TO STIMULI [None]
